FAERS Safety Report 10510014 (Version 1)
Quarter: 2014Q4

REPORT INFORMATION
  Report Type: Spontaneous
  Country: US (occurrence: None)
  Receive Date: 20141009
  Receipt Date: 20141009
  Transmission Date: 20150528
  Serious: Yes (Hospitalization)
  Sender: FDA-Public Use
  Company Number: None

PATIENT
  Age: 63 Year
  Sex: Female
  Weight: 82.4 kg

DRUGS (1)
  1. TAXOL [Suspect]
     Active Substance: PACLITAXEL
     Dates: end: 20140915

REACTIONS (3)
  - Blood potassium decreased [None]
  - Mucosal inflammation [None]
  - Proctitis [None]

NARRATIVE: CASE EVENT DATE: 20141006
